FAERS Safety Report 19514008 (Version 3)
Quarter: 2021Q3

REPORT INFORMATION
  Report Type: Report from Study
  Country: None (occurrence: US)
  Receive Date: 20210710
  Receipt Date: 20210906
  Transmission Date: 20211014
  Serious: Yes (Hospitalization, Congenital Anomaly, Other)
  Sender: FDA-Public Use
  Company Number: US-ABBVIE-21K-163-3981125-00

PATIENT
  Age: 27 Year
  Sex: Male
  Weight: 79.45 kg

DRUGS (3)
  1. SKYRIZI [Suspect]
     Active Substance: RISANKIZUMAB-RZAA
     Indication: PSORIASIS
     Route: 058
     Dates: start: 202006, end: 202104
  2. PFIZER?BIONTECH COVID?19 VACCINE [Concomitant]
     Active Substance: TOZINAMERAN
     Dosage: PFIZER
     Route: 030
     Dates: start: 20210419, end: 20210419
  3. PFIZER?BIONTECH COVID?19 VACCINE [Concomitant]
     Active Substance: TOZINAMERAN
     Indication: COVID-19 IMMUNISATION
     Dosage: PFIZER
     Route: 030
     Dates: start: 20210329, end: 20210329

REACTIONS (9)
  - Intentional product misuse [Unknown]
  - Cardiac dysfunction [Not Recovered/Not Resolved]
  - Cardiac arrest [Recovered/Resolved]
  - Cardiac failure [Not Recovered/Not Resolved]
  - Device inappropriate shock delivery [Recovered/Resolved]
  - Implantable defibrillator insertion [Unknown]
  - Heart disease congenital [Not Recovered/Not Resolved]
  - Unevaluable event [Not Recovered/Not Resolved]
  - Hospitalisation [Not Recovered/Not Resolved]

NARRATIVE: CASE EVENT DATE: 2021
